FAERS Safety Report 17287926 (Version 1)
Quarter: 2020Q1

REPORT INFORMATION
  Report Type: Spontaneous
  Country: US (occurrence: US)
  Receive Date: 20191231
  Receipt Date: 20191231
  Transmission Date: 20200409
  Serious: Yes (Hospitalization)
  Sender: FDA-Public Use
  Company Number: None

PATIENT
  Age: 55 Year
  Sex: Male

DRUGS (2)
  1. CAPECITABINE 500MG SANDOZ [Suspect]
     Active Substance: CAPECITABINE
     Indication: COLON CANCER
     Route: 048
     Dates: start: 20190929
  2. AVASTIN [Concomitant]
     Active Substance: BEVACIZUMAB

REACTIONS (2)
  - Therapy cessation [None]
  - Epistaxis [None]

NARRATIVE: CASE EVENT DATE: 20191208
